FAERS Safety Report 5729609-X (Version None)
Quarter: 2008Q2

REPORT INFORMATION
  Report Type: 
  Country: None (occurrence: None)
  Receive Date: 20080506
  Receipt Date: 20080430
  Transmission Date: 20081010
  Serious: Yes (Other)
  Sender: FDA-Public Use
  Company Number: US-MERCK-0805USA00153

PATIENT
  Age: 7 Year
  Sex: Male

DRUGS (2)
  1. SINGULAIR [Suspect]
     Route: 065
     Dates: end: 20080101
  2. TAMIFLU [Suspect]
     Route: 065
     Dates: start: 20080226, end: 20080301

REACTIONS (3)
  - AGITATION [None]
  - ANGER [None]
  - SUICIDAL IDEATION [None]
